FAERS Safety Report 25554790 (Version 1)
Quarter: 2025Q3

REPORT INFORMATION
  Report Type: Spontaneous
  Country: US (occurrence: None)
  Receive Date: 20250715
  Receipt Date: 20250715
  Transmission Date: 20251021
  Serious: Yes (Disabling)
  Sender: FDA-CTU
  Company Number: None

PATIENT
  Age: 31 Year
  Sex: Female
  Weight: 71.55 kg

DRUGS (6)
  1. BUSPAR [Suspect]
     Active Substance: BUSPIRONE HYDROCHLORIDE
     Dates: start: 20210827, end: 20210920
  2. TRILAFON [Concomitant]
     Active Substance: PERPHENAZINE
  3. COGENTIN [Concomitant]
     Active Substance: BENZTROPINE MESYLATE
  4. PROVIGIL [Concomitant]
     Active Substance: MODAFINIL
  5. LAMICTAL [Concomitant]
     Active Substance: LAMOTRIGINE
  6. ZOLOFT [Concomitant]
     Active Substance: SERTRALINE HYDROCHLORIDE

REACTIONS (1)
  - Rash [None]

NARRATIVE: CASE EVENT DATE: 20210827
